FAERS Safety Report 12457023 (Version 3)
Quarter: 2016Q3

REPORT INFORMATION
  Report Type: Spontaneous
  Country: US (occurrence: US)
  Receive Date: 20160610
  Receipt Date: 20160810
  Transmission Date: 20161109
  Serious: Yes (Hospitalization, Other)
  Sender: FDA-Public Use
  Company Number: US-009507513-1201USA00757

PATIENT
  Sex: Female
  Weight: 81.63 kg

DRUGS (3)
  1. FOSAMAX [Suspect]
     Active Substance: ALENDRONATE SODIUM
     Dosage: 70 MG, UNKNOWN
     Route: 048
     Dates: start: 200605, end: 201004
  2. ALENDRONATE SODIUM. [Suspect]
     Active Substance: ALENDRONATE SODIUM
     Indication: OSTEOPOROSIS
     Dosage: 70 MG, UNKNOWN
     Route: 048
     Dates: start: 20080820, end: 201004
  3. FOSAMAX [Suspect]
     Active Substance: ALENDRONATE SODIUM
     Indication: OSTEOPOROSIS
     Dosage: 70 MG, UNKNOWN
     Route: 048
     Dates: start: 20011101, end: 200604

REACTIONS (22)
  - Complication associated with device [Unknown]
  - Tooth disorder [Unknown]
  - Anaemia [Unknown]
  - Road traffic accident [Unknown]
  - Surgery [Unknown]
  - Foot operation [Unknown]
  - Paraesthesia [Unknown]
  - Incision site cellulitis [Unknown]
  - Tonsillectomy [Unknown]
  - Incision site erythema [Unknown]
  - Cough [Unknown]
  - Road traffic accident [Unknown]
  - Asthma [Unknown]
  - Femur fracture [Recovering/Resolving]
  - Arthritis [Unknown]
  - Cholecystectomy [Unknown]
  - Uterine leiomyoma [Unknown]
  - Arthroscopy [Unknown]
  - Femur fracture [Recovered/Resolved with Sequelae]
  - Hypertension [Unknown]
  - Joint arthroplasty [Unknown]
  - Vocal cord operation [Unknown]

NARRATIVE: CASE EVENT DATE: 2004
